FAERS Safety Report 20232258 (Version 1)
Quarter: 2021Q4

REPORT INFORMATION
  Report Type: Spontaneous
  Country: US (occurrence: None)
  Receive Date: 20211224
  Receipt Date: 20211224
  Transmission Date: 20220303
  Serious: Yes (Other)
  Sender: FDA-Public Use
  Company Number: None

PATIENT
  Age: 23 Year
  Sex: Female
  Weight: 134.1 kg

DRUGS (1)
  1. DUPIXENT [Suspect]
     Active Substance: DUPILUMAB
     Dosage: OTHER QUANTITY : 2 AUTOINJECTOR PENS;?
     Dates: start: 20211223, end: 20211223

REACTIONS (13)
  - Syncope [None]
  - Fall [None]
  - Nausea [None]
  - Dizziness [None]
  - Pain [None]
  - Feeling hot [None]
  - Hyperhidrosis [None]
  - Tinnitus [None]
  - Vision blurred [None]
  - Loss of consciousness [None]
  - Circulatory collapse [None]
  - Pallor [None]
  - Pallor [None]

NARRATIVE: CASE EVENT DATE: 20211223
